FAERS Safety Report 9204992 (Version 1)
Quarter: 2013Q1

REPORT INFORMATION
  Report Type: Spontaneous
  Country: US (occurrence: None)
  Receive Date: 20120709
  Receipt Date: 20120709
  Transmission Date: 20140127
  Serious: No
  Sender: FDA-Public Use
  Company Number: 2012HGS-003402

PATIENT
  Sex: Female
  Weight: 63.5 kg

DRUGS (8)
  1. BENLYSTA [Suspect]
     Indication: SYSTEMIC LUPUS ERYTHEMATOSUS
     Dosage: 1IN 28D INTRAVENOUSE DRIP
     Dates: start: 20120223
  2. PREDNISONE (PREDNISONE) (PREDNISONE) [Concomitant]
  3. CLONAZEPAM (CLONAZEPAM) (CLONAZEPAM) [Concomitant]
  4. SERTRALINE (SERTRALINE) (SERTRALINE) [Concomitant]
  5. ARTHROTEC (ARTHROTEC) (DICLOFENAC SODIUM, MISOPROSTOL) [Concomitant]
  6. ZOLPIDEM (ZOLPIDEM) (ZOLPIDEM) [Concomitant]
  7. ELIDEL (PIMECROLIMUS) (PIMECROLIMUS) [Concomitant]
  8. COICHICINE (COICHICINE) (COICHICINE) [Concomitant]

REACTIONS (4)
  - Depression [None]
  - Irritability [None]
  - Insomnia [None]
  - Infusion site pain [None]
